FAERS Safety Report 6723406-4 (Version None)
Quarter: 2010Q2

REPORT INFORMATION
  Report Type: 
  Country: None (occurrence: None)
  Receive Date: 20100513
  Receipt Date: 20100502
  Transmission Date: 20101027
  Serious: Yes (Other)
  Sender: FDA-Public Use
  Company Number: PHHY2010US20792

PATIENT
  Sex: Male

DRUGS (2)
  1. GLEEVEC [Suspect]
     Dosage: 800 MG, UNK
     Dates: start: 20020601, end: 20030101
  2. GLEEVEC [Suspect]
     Dosage: 600 MG DAILY
     Dates: start: 20030601

REACTIONS (3)
  - NEOPLASM MALIGNANT [None]
  - PROSTATE CANCER [None]
  - PROSTATECTOMY [None]
